FAERS Safety Report 7868341-3 (Version None)
Quarter: 2011Q4

REPORT INFORMATION
  Report Type: 
  Country: None (occurrence: None)
  Receive Date: 20111028
  Receipt Date: 20101213
  Transmission Date: 20120403
  Serious: Yes (Hospitalization)
  Sender: FDA-Public Use
  Company Number: US-AMGEN-USASP2010009001

PATIENT
  Age: 63 Year
  Sex: Female

DRUGS (2)
  1. METHOTREXATE (TREXALL) [Concomitant]
     Dates: start: 20080101
  2. ENBREL [Suspect]
     Indication: RHEUMATOID ARTHRITIS
     Dates: start: 20100401, end: 20101119

REACTIONS (6)
  - SEPSIS [None]
  - RHEUMATOID ARTHRITIS [None]
  - LOCAL SWELLING [None]
  - HEPATIC ENZYME INCREASED [None]
  - STAPHYLOCOCCAL INFECTION [None]
  - SKIN ULCER [None]
